FAERS Safety Report 6753693-8 (Version None)
Quarter: 2010Q2

REPORT INFORMATION
  Report Type: 
  Country: None (occurrence: None)
  Receive Date: 20100603
  Receipt Date: 20100520
  Transmission Date: 20101027
  Serious: Yes (Hospitalization)
  Sender: FDA-Public Use
  Company Number: IT-MYLANLABS-2010S1008978

PATIENT
  Age: 73 Year
  Sex: Male

DRUGS (4)
  1. ATENOLOL + CHLORTALIDONE [Suspect]
     Indication: HYPERTENSION
     Route: 048
     Dates: start: 20100101, end: 20100331
  2. TICLID [Concomitant]
     Indication: VASCULAR ENCEPHALOPATHY
     Route: 048
     Dates: start: 20100101, end: 20100331
  3. NORVASC [Concomitant]
     Indication: DRUG USE FOR UNKNOWN INDICATION
  4. BI EUGLUCON [Concomitant]
     Indication: DRUG USE FOR UNKNOWN INDICATION

REACTIONS (3)
  - ANAEMIA [None]
  - CONFUSIONAL STATE [None]
  - RENAL FAILURE ACUTE [None]
